FAERS Safety Report 6331131-7 (Version None)
Quarter: 2009Q3

REPORT INFORMATION
  Report Type: 
  Country: None (occurrence: None)
  Receive Date: 20090827
  Receipt Date: 20090817
  Transmission Date: 20100115
  Serious: Yes (Other)
  Sender: FDA-Public Use
  Company Number: US-ROCHE-651081

PATIENT
  Sex: Male

DRUGS (2)
  1. PEGASYS [Suspect]
     Indication: HEPATITIS C
     Dosage: FORM: PREFILLED SYRINGE
     Route: 065
     Dates: start: 20090619
  2. RIBAVIRIN [Suspect]
     Indication: HEPATITIS C
     Dosage: FORM: PILLS
     Route: 065
     Dates: start: 20090619

REACTIONS (5)
  - DELUSION [None]
  - DEPRESSION [None]
  - FATIGUE [None]
  - INSOMNIA [None]
  - NAUSEA [None]
